FAERS Safety Report 8899669 (Version 1)
Quarter: 2012Q4

REPORT INFORMATION
  Report Type: 
  Country: GR (occurrence: GR)
  Receive Date: 20121109
  Receipt Date: 20121109
  Transmission Date: 20130627
  Serious: Yes (Disabling)
  Sender: FDA-Public Use
  Company Number: GR-AMGEN-GRCSP2012070690

PATIENT
  Age: 52 Year
  Sex: Female
  Weight: 74 kg

DRUGS (9)
  1. PROLIA [Suspect]
     Indication: OSTEOPOROSIS
     Dosage: 60 mg, q6mo
     Route: 058
     Dates: start: 201108, end: 201208
  2. THYROHORMONE [Concomitant]
     Dosage: 0.1 mg, qd
     Route: 048
  3. PRITORPLUS [Concomitant]
     Dosage: 80 mg, qd
     Route: 048
  4. PRITORPLUS [Concomitant]
     Dosage: 12 mg, UNK
     Route: 048
  5. OMACOR [Concomitant]
     Dosage: 1000 mg, qd
     Route: 048
  6. SALACTOL [Concomitant]
     Dosage: 200 mg, qd
     Route: 048
  7. CALCIORAL D3 [Concomitant]
     Dosage: UNK UNK, qd
     Route: 048
  8. LACIPIL [Concomitant]
     Dosage: 4 mg, qd
     Route: 048
  9. LIPITOR [Concomitant]
     Dosage: 20 mg, qd
     Route: 048

REACTIONS (1)
  - Osteonecrosis of jaw [Recovering/Resolving]
